FAERS Safety Report 8942894 (Version 1)
Quarter: 2012Q4

REPORT INFORMATION
  Report Type: 
  Country: US (occurrence: US)
  Receive Date: 20121204
  Receipt Date: 20121204
  Transmission Date: 20130627
  Serious: No
  Sender: FDA-Public Use
  Company Number: US-BAYER-2012-124457

PATIENT
  Age: 20 Year
  Sex: Female

DRUGS (1)
  1. MIRENA [Suspect]
     Indication: CONTRACEPTION
     Dosage: 20 mcg/24hr, CONT
     Route: 015
     Dates: start: 20110209

REACTIONS (7)
  - Feeling abnormal [None]
  - Vomiting [None]
  - Mood swings [None]
  - Crying [None]
  - Hunger [None]
  - Pain [None]
  - Paraesthesia [None]
